FAERS Safety Report 23484104 (Version 2)
Quarter: 2024Q1

REPORT INFORMATION
  Report Type: Report from Study
  Country: CA (occurrence: CA)
  Receive Date: 20240206
  Receipt Date: 20240208
  Transmission Date: 20240410
  Serious: Yes (Other)
  Sender: FDA-Public Use
  Company Number: CA-ABBVIE-5621831

PATIENT
  Sex: Female

DRUGS (1)
  1. BOTOX [Suspect]
     Active Substance: ONABOTULINUMTOXINA
     Indication: Migraine
     Dosage: TIME INTERVAL: AS NECESSARY: FREQUENCY TEXT: EVERY 2.5 MONTHS
     Route: 030

REACTIONS (5)
  - Rotator cuff syndrome [Unknown]
  - Fall [Unknown]
  - Syncope [Unknown]
  - Tendon disorder [Unknown]
  - Migraine [Unknown]

NARRATIVE: CASE EVENT DATE: 20230205
